FAERS Safety Report 9331178 (Version 1)
Quarter: 2013Q2

REPORT INFORMATION
  Report Type: Spontaneous
  Country: GB (occurrence: GB)
  Receive Date: 20130605
  Receipt Date: 20130605
  Transmission Date: 20140414
  Serious: Yes (Hospitalization)
  Sender: FDA-Public Use
  Company Number: PHHY2013GB054619

PATIENT
  Age: 70 Year
  Sex: Male

DRUGS (13)
  1. PERINDOPRIL [Suspect]
     Indication: PROPHYLAXIS
     Dosage: 2 MG, QD
     Route: 048
  2. INDAPAMIDE [Suspect]
     Indication: PROPHYLAXIS
     Dosage: 2.5 MG, QD
     Route: 048
  3. AMLODIPINE [Concomitant]
     Dosage: 5 MG, QD
     Route: 048
  4. SENNA [Concomitant]
     Dosage: 7.5 MG AT NIGHT
     Route: 048
  5. MESALAZINE [Concomitant]
     Dosage: 1 G, BID
     Route: 048
  6. SYMBICORT [Concomitant]
     Dosage: 1 DF, BID, ONE PUFF TWICE DAILY
  7. PARACETAMOL [Concomitant]
     Dosage: 1 G, QID
     Route: 050
  8. SALBUTAMOL [Concomitant]
     Dosage: 2 DF, 2 PUFFS AS REQUIRED
     Route: 050
  9. ACIDEX [Concomitant]
     Dosage: 10 ML, QID
     Route: 048
  10. GLYCERYL TRINITRATE [Concomitant]
     Route: 061
  11. XYLOPROCT [Concomitant]
     Route: 061
  12. LAXIDO [Concomitant]
     Dosage: 2 DF, 2 SACHETS MORNING
     Route: 043
  13. GABAPENTIN [Concomitant]

REACTIONS (5)
  - Convulsion [Recovered/Resolved]
  - Hyponatraemia [Not Recovered/Not Resolved]
  - Malaise [Recovered/Resolved]
  - Headache [Recovered/Resolved]
  - Confusional state [Recovered/Resolved]
